FAERS Safety Report 4929139-9 (Version None)
Quarter: 2006Q1

REPORT INFORMATION
  Report Type: 
  Country: None (occurrence: None)
  Receive Date: 20060301
  Receipt Date: 20051011
  Transmission Date: 20060701
  Serious: Yes (Hospitalization, Other)
  Sender: FDA-Public Use
  Company Number: CA-BRISTOL-MYERS SQUIBB COMPANY-13141551

PATIENT
  Age: 66 Year
  Sex: Male

DRUGS (14)
  1. CETUXIMAB [Suspect]
     Indication: NON-SMALL CELL LUNG CANCER
     Dosage: THERAPY INITIATED 04-JUL-2005-PER PROTOCOL GIVEN WEEKLY.CYCLE 4 (27-SEPT-05)DOSE=342.
     Route: 042
     Dates: start: 20051003, end: 20051003
  2. CARBOPLATIN [Suspect]
     Indication: NON-SMALL CELL LUNG CANCER
     Dosage: THERAPY INITIATED 04-JUL-2005-PER PROTOCOL ADMINISTERED EVERY 3 WEEKS. CYCLE 4 (27-SEPT-05)DOSE=359.
     Route: 042
     Dates: start: 20051003, end: 20051003
  3. GEMCITABINE [Suspect]
     Indication: NON-SMALL CELL LUNG CANCER
     Dosage: THERAPY 1ST ON 04-JUL-05.(PER PROTOCOL GIVEN DAYS 1 + 8 EVERY 3 WEEKS).CYCLE 4 (27-SEPT-05)DOSE=1450
     Route: 042
     Dates: start: 20051003, end: 20051003
  4. ZANTAC [Concomitant]
  5. MORPHINE SULFATE [Concomitant]
  6. NORVASC [Concomitant]
  7. ASPIRIN [Concomitant]
  8. SENNA-S [Concomitant]
     Dosage: AT HOUR OF SLEEP
  9. DOCUSATE SODIUM [Concomitant]
  10. MEGACE [Concomitant]
  11. LOSEC [Concomitant]
  12. ZOFRAN [Concomitant]
  13. METOCLOPRAMIDE [Concomitant]
  14. EPREX [Concomitant]

REACTIONS (1)
  - RENAL INFARCT [None]
